FAERS Safety Report 14646632 (Version 1)
Quarter: 2018Q1

REPORT INFORMATION
  Report Type: Report from Study
  Country: US (occurrence: US)
  Receive Date: 20180316
  Receipt Date: 20180316
  Transmission Date: 20180509
  Serious: Yes (Other)
  Sender: FDA-Public Use
  Company Number: US-BIOGEN-2018BI00541140

PATIENT
  Age: 60 Year
  Sex: Male

DRUGS (1)
  1. AVONEX [Suspect]
     Active Substance: INTERFERON BETA-1A
     Indication: MULTIPLE SCLEROSIS
     Route: 030
     Dates: end: 201603

REACTIONS (3)
  - Decreased immune responsiveness [Unknown]
  - Fungal infection [Recovered/Resolved]
  - Sinus perforation [Recovered/Resolved]

NARRATIVE: CASE EVENT DATE: 201603
